FAERS Safety Report 10641733 (Version 1)
Quarter: 2014Q4

REPORT INFORMATION
  Report Type: Spontaneous
  Country: GB (occurrence: GB)
  Receive Date: 20141209
  Receipt Date: 20141209
  Transmission Date: 20150529
  Serious: Yes (Hospitalization)
  Sender: FDA-Public Use
  Company Number: PHHY2014GB158471

PATIENT
  Age: 85 Year
  Sex: Female

DRUGS (9)
  1. WARFARIN [Interacting]
     Active Substance: WARFARIN
     Dosage: 1 MG, UNK
     Route: 048
  2. LACTULOSE. [Concomitant]
     Active Substance: LACTULOSE
     Dosage: 15 ML, THREE TIMES A DAY WHEN REQUIRED
     Route: 048
  3. DIGOXIN. [Concomitant]
     Active Substance: DIGOXIN
     Dosage: 125 UG, QD (IN THE MORNING)
     Route: 048
  4. FUROSEMIDE. [Concomitant]
     Active Substance: FUROSEMIDE
     Dosage: 40 MG, QD (IN THE MORNING)
     Route: 048
  5. PRAVASTATIN [Concomitant]
     Active Substance: PRAVASTATIN\PRAVASTATIN SODIUM
     Dosage: 20 MG, QD (AT NIGHT)
     Route: 048
  6. TRAMADOL [Suspect]
     Active Substance: TRAMADOL
     Dosage: 50 MG, FOUR TIMES A DAY WHEN REQUIRED
     Route: 048
  7. CANDESARTAN [Concomitant]
     Active Substance: CANDESARTAN
     Dosage: 4 MG, QD (IN THE MORNING)
     Route: 048
  8. ADCAL-D3 [Concomitant]
     Active Substance: CALCIUM CARBONATE\CHOLECALCIFEROL
     Dosage: 1 DF, QD (AT NIGHT)
     Route: 048
  9. BUTRANS [Concomitant]
     Active Substance: BUPRENORPHINE
     Dosage: 20 UG, QW
     Route: 061

REACTIONS (3)
  - International normalised ratio increased [Unknown]
  - Epistaxis [Recovered/Resolved]
  - Drug interaction [Unknown]
